FAERS Safety Report 9239272 (Version 3)
Quarter: 2013Q2

REPORT INFORMATION
  Report Type: Spontaneous
  Country: US (occurrence: US)
  Receive Date: 20130418
  Receipt Date: 20130603
  Transmission Date: 20140414
  Serious: Yes (Hospitalization, Other)
  Sender: FDA-Public Use
  Company Number: US-PFIZER INC-2013117704

PATIENT
  Age: 72 Year
  Sex: Female
  Weight: 71.2 kg

DRUGS (9)
  1. BISOPROLOL FUMARATE [Suspect]
     Indication: HEART RATE INCREASED
     Dosage: 2.5 MG, 1X/DAY
  2. BISOPROLOL FUMARATE [Suspect]
     Dosage: 5 MG, AS NEEDED
     Dates: start: 2012
  3. TIKOSYN [Suspect]
     Indication: ATRIAL FIBRILLATION
     Dosage: 375 MG, 2X/DAY
     Route: 048
     Dates: start: 201112
  4. ASPIRIN [Suspect]
     Indication: OSTEOARTHRITIS
     Dosage: UNK
     Dates: start: 2005, end: 2011
  5. LOVAZA [Suspect]
     Indication: SUPPLEMENTATION THERAPY
     Dosage: 1 G, 2X/DAY
     Route: 048
  6. PRADAXA [Suspect]
     Indication: ANTICOAGULANT THERAPY
     Dosage: UNK
     Dates: start: 201110, end: 201110
  7. NIASPAN [Concomitant]
     Dosage: UNK
     Route: 048
  8. BISOPROLOL [Concomitant]
     Indication: HYPERTENSION
     Dosage: UNK
  9. BISOPROLOL [Concomitant]
     Dosage: 2.5 MG, 1X/DAY

REACTIONS (32)
  - Atrial fibrillation [Unknown]
  - Nausea [Unknown]
  - Abasia [Unknown]
  - Autoimmune disorder [Unknown]
  - Weight increased [Unknown]
  - Cardiomegaly [Unknown]
  - Accident [Unknown]
  - Arthritis [Recovered/Resolved]
  - Mobility decreased [Not Recovered/Not Resolved]
  - Bedridden [Not Recovered/Not Resolved]
  - Fall [Unknown]
  - Drug ineffective [Unknown]
  - Muscle disorder [Unknown]
  - Musculoskeletal pain [Unknown]
  - Pain in extremity [Not Recovered/Not Resolved]
  - Pain [Unknown]
  - Skin irritation [Unknown]
  - Asthenia [Unknown]
  - Heart rate increased [Unknown]
  - Sluggishness [Unknown]
  - Feeling abnormal [Unknown]
  - Somnolence [Unknown]
  - Blood cholesterol increased [Unknown]
  - Inappropriate schedule of drug administration [Unknown]
  - Blood glucose increased [Unknown]
  - Thyroid function test abnormal [Unknown]
  - Joint stiffness [Unknown]
  - Muscle spasms [Unknown]
  - Musculoskeletal stiffness [Unknown]
  - Asthma [Unknown]
  - Feeling abnormal [Unknown]
  - Joint stiffness [Not Recovered/Not Resolved]
